FAERS Safety Report 8072794-8 (Version None)
Quarter: 2012Q1

REPORT INFORMATION
  Report Type: 
  Country: None (occurrence: None)
  Receive Date: 20120120
  Receipt Date: 20120118
  Transmission Date: 20120608
  Serious: Yes (Death, Hospitalization, Disabling)
  Sender: FDA-Public Use
  Company Number: 2011SP043637

PATIENT
  Age: 65 Year
  Sex: Male
  Weight: 80 kg

DRUGS (7)
  1. NEORECORMON [Concomitant]
  2. VIRAFERONPEG [Suspect]
     Indication: HEPATIC CIRRHOSIS
     Dosage: 150 MCG;QW;SC
     Route: 058
     Dates: start: 20110226, end: 20110901
  3. VIRAFERONPEG [Suspect]
     Indication: HEPATITIS C
     Dosage: 150 MCG;QW;SC
     Route: 058
     Dates: start: 20110226, end: 20110901
  4. VICTRELIS [Suspect]
     Indication: HEPATITIS C
     Dosage: 12 DF;QD;PO
     Route: 048
     Dates: start: 20110326, end: 20110901
  5. VICTRELIS [Suspect]
     Indication: HEPATIC CIRRHOSIS
     Dosage: 12 DF;QD;PO
     Route: 048
     Dates: start: 20110326, end: 20110901
  6. REBETOL [Suspect]
     Indication: HEPATITIS C
     Dosage: 1200 MG;QD;PO
     Route: 048
     Dates: start: 20110226, end: 20110901
  7. REBETOL [Suspect]
     Indication: HEPATIC CIRRHOSIS
     Dosage: 1200 MG;QD;PO
     Route: 048
     Dates: start: 20110226, end: 20110901

REACTIONS (19)
  - PORTAL HYPERTENSION [None]
  - DOLICHOCOLON [None]
  - TUMOUR COMPRESSION [None]
  - HEPATIC LESION [None]
  - LABORATORY TEST ABNORMAL [None]
  - LUNG NEOPLASM [None]
  - ABDOMINAL PAIN [None]
  - LYMPHADENOPATHY [None]
  - METASTASES TO LUNG [None]
  - IMPAIRED GASTRIC EMPTYING [None]
  - WEIGHT DECREASED [None]
  - RETROPERITONEAL NEOPLASM [None]
  - ASCITES [None]
  - METASTATIC NEOPLASM [None]
  - HAEMOCHROMATOSIS [None]
  - GASTRITIS [None]
  - METASTASES TO LIVER [None]
  - GENERAL PHYSICAL HEALTH DETERIORATION [None]
  - HEPATIC CIRRHOSIS [None]
